FAERS Safety Report 9807786 (Version 1)
Quarter: 2014Q1

REPORT INFORMATION
  Report Type: Spontaneous
  Country: US (occurrence: US)
  Receive Date: 20140110
  Receipt Date: 20140110
  Transmission Date: 20141002
  Serious: Yes (Other)
  Sender: FDA-Public Use
  Company Number: US-JNJFOC-20140100865

PATIENT
  Sex: Female
  Weight: 44.45 kg

DRUGS (8)
  1. DURAGESIC [Suspect]
     Indication: PAIN
     Route: 062
     Dates: start: 2000
  2. DURAGESIC [Suspect]
     Indication: BACK PAIN
     Route: 062
     Dates: start: 2000
  3. DURAGESIC [Suspect]
     Indication: PAIN
     Route: 062
  4. DURAGESIC [Suspect]
     Indication: PAIN
     Route: 062
     Dates: start: 201312
  5. DURAGESIC [Suspect]
     Indication: BACK PAIN
     Route: 062
  6. DURAGESIC [Suspect]
     Indication: BACK PAIN
     Route: 062
     Dates: start: 201312
  7. METHOTREXATE [Concomitant]
     Indication: PRODUCT USED FOR UNKNOWN INDICATION
     Route: 065
  8. RITUXAN [Concomitant]
     Indication: JOINT DESTRUCTION
     Route: 042

REACTIONS (5)
  - Osteoporosis [Not Recovered/Not Resolved]
  - Colon cancer [Recovered/Resolved]
  - Body height decreased [Unknown]
  - Influenza [Not Recovered/Not Resolved]
  - Drug withdrawal syndrome [Not Recovered/Not Resolved]
